FAERS Safety Report 5814904-6 (Version None)
Quarter: 2008Q3

REPORT INFORMATION
  Report Type: 
  Country: None (occurrence: None)
  Receive Date: 20080718
  Receipt Date: 20080709
  Transmission Date: 20090109
  Serious: Yes (Death, Other)
  Sender: FDA-Public Use
  Company Number: CN-ROCHE-575763

PATIENT
  Age: 60 Year
  Sex: Female

DRUGS (3)
  1. CEFTRIAXONE SODIUM [Suspect]
     Indication: UPPER RESPIRATORY TRACT INFECTION
     Dosage: GIVEN WITH 500 ML 0.9% SODIUM CHLORIDE SOLUTION.
     Route: 042
  2. RIBAVIRIN [Interacting]
     Indication: DRUG USE FOR UNKNOWN INDICATION
     Route: 065
  3. DEXAMETHASONE [Interacting]
     Indication: DRUG USE FOR UNKNOWN INDICATION
     Route: 065

REACTIONS (9)
  - CARDIAC ARREST [None]
  - CHEST DISCOMFORT [None]
  - CYANOSIS [None]
  - DEPRESSED LEVEL OF CONSCIOUSNESS [None]
  - DRUG INTERACTION [None]
  - DYSARTHRIA [None]
  - DYSPNOEA [None]
  - PALPITATIONS [None]
  - PERIPHERAL COLDNESS [None]
